FAERS Safety Report 8187910 (Version 2)
Quarter: 2016Q3

REPORT INFORMATION
  Report Type: Report from Study
  Country: US (occurrence: US)
  Receive Date: 20111018
  Receipt Date: 20160915
  Transmission Date: 20161109
  Serious: Yes (Death, Hospitalization, Other)
  Sender: FDA-Public Use
  Company Number: US-ROCHE-1005017

PATIENT
  Age: 68 Year
  Sex: Male
  Weight: 80.5 kg

DRUGS (2)
  1. BEVACIZUMAB [Suspect]
     Active Substance: BEVACIZUMAB
     Indication: HEPATOCELLULAR CARCINOMA
     Dosage: LAST DOSE: 03/AUG/2011
     Route: 042
     Dates: start: 20110621
  2. TEMSIROLIMUS [Suspect]
     Active Substance: TEMSIROLIMUS
     Indication: HEPATOCELLULAR CARCINOMA
     Dosage: LAST DOSE: 03/AUG/2011, ?DOSE DELAYED BY 7 DAYS ON 10/AUG/2011
     Route: 042
     Dates: start: 20110621

REACTIONS (11)
  - Muscular weakness [Not Recovered/Not Resolved]
  - Diarrhoea [Not Recovered/Not Resolved]
  - Muscular weakness [Unknown]
  - Tumour flare [Fatal]
  - Embolism [Unknown]
  - Pneumonitis [Not Recovered/Not Resolved]
  - Colitis [Unknown]
  - Dyspnoea [Unknown]
  - Colitis [Not Recovered/Not Resolved]
  - Pneumonitis [Unknown]
  - Dyspnoea [Not Recovered/Not Resolved]

NARRATIVE: CASE EVENT DATE: 20110807
